FAERS Safety Report 24625470 (Version 2)
Quarter: 2024Q4

REPORT INFORMATION
  Report Type: Report from Study
  Country: JP (occurrence: JP)
  Receive Date: 20241115
  Receipt Date: 20241126
  Transmission Date: 20250115
  Serious: Yes (Hospitalization)
  Sender: ALEXION PHARMACEUTICALS
  Company Number: JP-ASTRAZENECA-240047656_032320_P_1

PATIENT
  Age: 43 Year
  Weight: 93 kg

DRUGS (33)
  1. ANIFROLUMAB [Suspect]
     Active Substance: ANIFROLUMAB
     Indication: Systemic lupus erythematosus
     Dosage: 300 MILLIGRAM, UNK, FREQUENCY: Q4WK
  2. UNSPECIFIED INGREDIENT [Concomitant]
     Active Substance: UNSPECIFIED INGREDIENT
     Dosage: DOSE UNKNOWN, TYPE: INACTIVATED HERPES ZOSTER VACCINE
     Route: 065
  3. PREDNISOLONE [Concomitant]
     Active Substance: PREDNISOLONE
     Indication: Systemic lupus erythematosus
     Dosage: NUMBER OF SEPARATE DOSAGES UNKNOWN
  4. PREDNISOLONE [Concomitant]
     Active Substance: PREDNISOLONE
     Dosage: NUMBER OF SEPARATE DOSAGES UNKNOWN
  5. PREDNISOLONE [Concomitant]
     Active Substance: PREDNISOLONE
     Dosage: NUMBER OF SEPARATE DOSAGES UNKNOWN
  6. PREDNISOLONE [Concomitant]
     Active Substance: PREDNISOLONE
     Dosage: NUMBER OF SEPARATE DOSAGES UNKNOWN
  7. PREDNISOLONE [Concomitant]
     Active Substance: PREDNISOLONE
     Dosage: NUMBER OF SEPARATE DOSAGES UNKNOWN
  8. PREDNISOLONE [Concomitant]
     Active Substance: PREDNISOLONE
     Dosage: NUMBER OF SEPARATE DOSAGES UNKNOWN
  9. PREDNISOLONE [Concomitant]
     Active Substance: PREDNISOLONE
     Dosage: NUMBER OF SEPARATE DOSAGES UNKNOWN
  10. PREDNISOLONE [Concomitant]
     Active Substance: PREDNISOLONE
     Dosage: NUMBER OF SEPARATE DOSAGES UNKNOWN
  11. PREDNISOLONE [Concomitant]
     Active Substance: PREDNISOLONE
     Dosage: NUMBER OF SEPARATE DOSAGES UNKNOWN
  12. MIZORIBINE [Concomitant]
     Active Substance: MIZORIBINE
     Indication: Systemic lupus erythematosus
     Dosage: NUMBER OF SEPARATE DOSAGES UNKNOWN
  13. MIZORIBINE [Concomitant]
     Active Substance: MIZORIBINE
     Dosage: NUMBER OF SEPARATE DOSAGES UNKNOWN
  14. MIZORIBINE [Concomitant]
     Active Substance: MIZORIBINE
     Dosage: NUMBER OF SEPARATE DOSAGES UNKNOWN
  15. ASPIRIN [Concomitant]
     Active Substance: ASPIRIN
     Indication: Cerebral thrombosis
     Dosage: NUMBER OF SEPARATE DOSAGES UNKNOWN
  16. REBAMIPIDE [Concomitant]
     Active Substance: REBAMIPIDE
     Indication: Prophylaxis
     Dosage: NUMBER OF SEPARATE DOSAGES UNKNOWN
  17. LOXOPROFEN SODIUM DIHYDRATE [Concomitant]
     Active Substance: LOXOPROFEN SODIUM DIHYDRATE
     Indication: Systemic lupus erythematosus
     Dosage: NUMBER OF SEPARATE DOSAGES UNKNOWN
  18. ELDECALCITOL [Concomitant]
     Active Substance: ELDECALCITOL
     Indication: Osteoporosis
     Dosage: NUMBER OF SEPARATE DOSAGES UNKNOWN
  19. ROSUVASTATIN [Concomitant]
     Active Substance: ROSUVASTATIN
     Indication: Hyperlipidaemia
     Dosage: NUMBER OF SEPARATE DOSAGES UNKNOWN
  20. TOCOPHERYL NICOTINATE, D-.ALPHA. [Concomitant]
     Active Substance: TOCOPHERYL NICOTINATE, D-.ALPHA.
     Indication: Peripheral arterial occlusive disease
     Dosage: NUMBER OF SEPARATE DOSAGES UNKNOWN
  21. ACTONEL [Concomitant]
     Active Substance: RISEDRONATE SODIUM
     Indication: Osteoporosis
     Dosage: NUMBER OF SEPARATE DOSAGES UNKNOWN
  22. BISOPROLOL FUMARATE [Concomitant]
     Active Substance: BISOPROLOL FUMARATE
     Indication: Atrial fibrillation
     Dosage: NUMBER OF SEPARATE DOSAGES UNKNOWN
  23. PIOGLITAZONE [Concomitant]
     Active Substance: PIOGLITAZONE
     Indication: Diabetes mellitus
     Dosage: NUMBER OF SEPARATE DOSAGES UNKNOWN
  24. ETIZOLAM [Concomitant]
     Active Substance: ETIZOLAM
     Indication: Anxiety disorder
     Dosage: NUMBER OF SEPARATE DOSAGES UNKNOWN
  25. ESCITALOPRAM [Concomitant]
     Active Substance: ESCITALOPRAM OXALATE
     Indication: Depression
     Dosage: NUMBER OF SEPARATE DOSAGES UNKNOWN
  26. LEVOMEPROMAZINE [Concomitant]
     Active Substance: LEVOMEPROMAZINE
     Indication: Depression
     Dosage: NUMBER OF SEPARATE DOSAGES UNKNOWN
  27. ALPRAZOLAM [Concomitant]
     Active Substance: ALPRAZOLAM
     Indication: Depression
     Dosage: NUMBER OF SEPARATE DOSAGES UNKNOWN
  28. TANDOSPIRONE CITRATE [Concomitant]
     Active Substance: TANDOSPIRONE CITRATE
     Indication: Depression
     Dosage: NUMBER OF SEPARATE DOSAGES UNKNOWN
  29. MIYA-BM [Concomitant]
     Active Substance: CLOSTRIDIUM BUTYRICUM SPORES STRAIN M-55
     Indication: Constipation
     Dosage: NUMBER OF SEPARATE DOSAGES UNKNOWN
  30. AMOXICILLIN\CLARITHROMYCIN\VONOPRAZAN FUMURATE [Concomitant]
     Active Substance: AMOXICILLIN\CLARITHROMYCIN\VONOPRAZAN FUMURATE
     Indication: Helicobacter infection
     Dosage: NUMBER OF SEPARATE DOSAGES UNKNOWN
  31. SODIUM FERROUS CITRATE [Concomitant]
     Active Substance: SODIUM FERROUS CITRATE
     Indication: Iron deficiency anaemia
     Dosage: NUMBER OF SEPARATE DOSAGES UNKNOWN
  32. NITROFURANTOIN [Concomitant]
     Active Substance: NITROFURANTOIN
     Indication: Gastric ulcer
     Dosage: NUMBER OF SEPARATE DOSAGES UNKNOWN
  33. AZUNOL [Concomitant]
     Indication: Eczema
     Dosage: NUMBER OF SEPARATE DOSAGES UNKNOWN

REACTIONS (4)
  - Bronchitis [Recovered/Resolved]
  - Eczema [Recovered/Resolved]
  - Asthma [Recovered/Resolved]
  - Constipation [Recovered/Resolved]
